FAERS Safety Report 24189721 (Version 11)
Quarter: 2025Q4

REPORT INFORMATION
  Report Type: Spontaneous
  Country: US (occurrence: US)
  Receive Date: 20240808
  Receipt Date: 20251111
  Transmission Date: 20260118
  Serious: No
  Sender: BIOGEN
  Company Number: US-BIOGEN-2024BI01276987

PATIENT
  Age: 60 Year
  Sex: Female

DRUGS (23)
  1. VUMERITY [Suspect]
     Active Substance: DIROXIMEL FUMARATE
     Indication: Product used for unknown indication
     Dates: start: 20240729, end: 20251003
  2. VUMERITY [Suspect]
     Active Substance: DIROXIMEL FUMARATE
     Indication: Multiple sclerosis
     Dates: start: 20240729
  3. VUMERITY [Suspect]
     Active Substance: DIROXIMEL FUMARATE
     Dosage: DOSAGE TEXT:2 CAPSULES (462 MG) BY MOUTH TWICE A DAY
     Dates: start: 2024
  4. VUMERITY [Suspect]
     Active Substance: DIROXIMEL FUMARATE
     Dates: start: 20240731
  5. VUMERITY [Suspect]
     Active Substance: DIROXIMEL FUMARATE
     Dosage: DOSAGE TEXT:231 MG IN THE MORNING AND IN THE EVENING. REDUCED DOSE
     Dates: start: 202408
  6. CLONAZEPAM [Suspect]
     Active Substance: CLONAZEPAM
     Indication: Product used for unknown indication
  7. AMITRIPTYLINE [Suspect]
     Active Substance: AMITRIPTYLINE
     Indication: Product used for unknown indication
  8. LIBRAX [Suspect]
     Active Substance: CHLORDIAZEPOXIDE HYDROCHLORIDE\CLIDINIUM BROMIDE
     Indication: Product used for unknown indication
  9. TRELEGY ELLIPTA [Suspect]
     Active Substance: FLUTICASONE FUROATE\UMECLIDINIUM BROMIDE\VILANTEROL TRIFENATATE
     Indication: Product used for unknown indication
  10. ESCITALOPRAM [Suspect]
     Active Substance: ESCITALOPRAM OXALATE
     Indication: Product used for unknown indication
  11. PROLIA [Concomitant]
     Active Substance: DENOSUMAB
     Dosage: DOSAGE TEXT:60MG/ML
  12. COPAXONE [Concomitant]
     Active Substance: GLATIRAMER ACETATE
     Dosage: DOSAGE TEXT:40 MG/ML SYRINGE
  13. RESTASIS [Concomitant]
     Active Substance: CYCLOSPORINE
     Dosage: DOSAGE TEXT:0.05 PERCENT DROPERETTE
  14. TYLENOL ARTHRITIS PAIN [Concomitant]
     Active Substance: ACETAMINOPHEN
  15. VITAMIN D3 [Concomitant]
     Active Substance: CHOLECALCIFEROL
  16. MOMETASONE FUROATE [Concomitant]
     Active Substance: MOMETASONE FUROATE
  17. BISOPROLOL FUMARATE [Concomitant]
     Active Substance: BISOPROLOL FUMARATE
  18. BUDESONIDE [Concomitant]
     Active Substance: BUDESONIDE
     Dosage: DOSAGE TEXT:FOA 2MG/ACT
  19. CALCIUM\VITAMIN D [Concomitant]
     Active Substance: CALCIUM\VITAMIN D
     Dosage: DOSAGE TEXT:750-500
  20. CEQUA [Concomitant]
     Active Substance: CYCLOSPORINE
  21. FEXOFENADINE [Concomitant]
     Active Substance: FEXOFENADINE HYDROCHLORIDE
  22. KETOCONAZOLE [Concomitant]
     Active Substance: KETOCONAZOLE
     Dosage: DOSAGE TEXT:CRE 2%
  23. Restora [Concomitant]

REACTIONS (23)
  - Gastrointestinal disorder [Not Recovered/Not Resolved]
  - Heart rate increased [Not Recovered/Not Resolved]
  - Dyspepsia [Unknown]
  - Insomnia [Unknown]
  - Immune system disorder [Unknown]
  - Flatulence [Unknown]
  - Pruritus [Recovered/Resolved]
  - Multiple sclerosis [Not Recovered/Not Resolved]
  - Liver function test increased [Recovered/Resolved]
  - Alopecia [Not Recovered/Not Resolved]
  - Asthenia [Unknown]
  - Dizziness [Unknown]
  - Hiatus hernia [Not Recovered/Not Resolved]
  - Anxiety [Unknown]
  - Ulcer [Not Recovered/Not Resolved]
  - Weight decreased [Not Recovered/Not Resolved]
  - Eructation [Not Recovered/Not Resolved]
  - SARS-CoV-2 test positive [Not Recovered/Not Resolved]
  - Tremor [Unknown]
  - Feeling jittery [Unknown]
  - Bronchial hyperreactivity [Unknown]
  - Flushing [Unknown]
  - Gastrooesophageal reflux disease [Not Recovered/Not Resolved]

NARRATIVE: CASE EVENT DATE: 20240101
